FAERS Safety Report 6190436-3 (Version None)
Quarter: 2009Q2

REPORT INFORMATION
  Report Type: 
  Country: None (occurrence: None)
  Receive Date: 20090513
  Receipt Date: 20090513
  Transmission Date: 20091009
  Serious: Yes (Disabling)
  Sender: FDA-Public Use
  Company Number: None

PATIENT
  Sex: Female
  Weight: 56.6996 kg

DRUGS (1)
  1. BUSPAR [Suspect]
     Indication: DEPRESSION
     Dosage: 1 PILL DAILY OROPHARINGEAL
     Route: 049
     Dates: start: 20030301, end: 20090304

REACTIONS (2)
  - NERVOUS SYSTEM DISORDER [None]
  - TREMOR [None]
